FAERS Safety Report 9186162 (Version 1)
Quarter: 2013Q1

REPORT INFORMATION
  Report Type: Spontaneous
  Country: US (occurrence: US)
  Receive Date: 20130325
  Receipt Date: 20130325
  Transmission Date: 20140127
  Serious: No
  Sender: FDA-Public Use
  Company Number: US-ASTRAZENECA-2013SE16100

PATIENT
  Age: 62 Year
  Sex: Male
  Weight: 106.6 kg

DRUGS (11)
  1. NEXIUM [Suspect]
     Indication: BARRETT^S OESOPHAGUS
     Route: 048
     Dates: start: 2003, end: 201302
  2. NEXIUM [Suspect]
     Indication: GASTROOESOPHAGEAL REFLUX DISEASE
     Route: 048
     Dates: start: 2003, end: 201302
  3. PRILOSEC OTC [Suspect]
     Indication: GASTROOESOPHAGEAL REFLUX DISEASE
     Route: 048
  4. OMEPRAZOLE [Suspect]
     Indication: BARRETT^S OESOPHAGUS
     Route: 048
     Dates: start: 201302
  5. OMEPRAZOLE [Suspect]
     Indication: GASTROOESOPHAGEAL REFLUX DISEASE
     Route: 048
     Dates: start: 201302
  6. PINDOLOL [Concomitant]
     Indication: BLOOD PRESSURE ABNORMAL
     Route: 048
  7. TRIAMPTERENE [Concomitant]
     Indication: BLOOD PRESSURE ABNORMAL
     Dosage: 37.5 MG + 2.5 MG
     Route: 048
  8. TRIAMPTERENE [Concomitant]
     Indication: DIURETIC THERAPY
     Dosage: 37.5 MG + 2.5 MG
     Route: 048
  9. ALOPURINOL [Concomitant]
     Indication: GOUT
     Route: 048
  10. MULTIVITAMIN [Concomitant]
     Indication: VITAMIN SUPPLEMENTATION
     Route: 048
  11. ANTIOXIDANT [Concomitant]
     Indication: SUPPLEMENTATION THERAPY
     Route: 048

REACTIONS (4)
  - Dyspepsia [Unknown]
  - Haemorrhage [Unknown]
  - Drug ineffective [Unknown]
  - Intentional drug misuse [Unknown]
